FAERS Safety Report 14255588 (Version 2)
Quarter: 2017Q4

REPORT INFORMATION
  Report Type: Report from Study
  Country: RU (occurrence: RU)
  Receive Date: 20171206
  Receipt Date: 20171226
  Transmission Date: 20180321
  Serious: Yes (Other)
  Sender: FDA-Public Use
  Company Number: RU-009507513-1712RUS001072

PATIENT
  Age: 44 Year
  Sex: Female

DRUGS (5)
  1. PEGINTERFERON ALFA-2B [Suspect]
     Active Substance: PEGINTERFERON ALFA-2B
     Indication: CHRONIC HEPATITIS C
     Dosage: 1.5 UG/KG/IN A WEEK
     Route: 058
     Dates: start: 2007
  2. DASABUVIR [Suspect]
     Active Substance: DASABUVIR
     Indication: CHRONIC HEPATITIS C
     Dosage: 250 MG (1 TABLET), BID
     Route: 048
     Dates: start: 2016
  3. RIBAVIRIN. [Suspect]
     Active Substance: RIBAVIRIN
     Dosage: WEIGHT-BASED DOSE, BID
     Route: 048
     Dates: start: 2016
  4. RIBAVIRIN. [Suspect]
     Active Substance: RIBAVIRIN
     Indication: CHRONIC HEPATITIS C
     Dosage: 15 MG/KG/DAY
     Route: 048
     Dates: start: 2007
  5. OMBITASVIR (+) PARITAPREVIR (+) RITONAVIR [Suspect]
     Active Substance: OMBITASVIR\PARITAPREVIR\RITONAVIR
     Indication: CHRONIC HEPATITIS C
     Dosage: 2 TABLETS, QD, WITH FOOD
     Route: 048
     Dates: start: 2016

REACTIONS (6)
  - Fatigue [Recovered/Resolved]
  - Hyperbilirubinaemia [Recovering/Resolving]
  - Anaemia [Unknown]
  - Influenza like illness [Unknown]
  - Nausea [Recovered/Resolved]
  - Leukopenia [Unknown]

NARRATIVE: CASE EVENT DATE: 2007
